FAERS Safety Report 18478233 (Version 1)
Quarter: 2020Q4

REPORT INFORMATION
  Report Type: Spontaneous
  Country: US (occurrence: US)
  Receive Date: 20201109
  Receipt Date: 20201109
  Transmission Date: 20210114
  Serious: Yes (Life-Threatening, Hospitalization, Other)
  Sender: FDA-Public Use
  Company Number: US-GLENMARK PHARMACEUTICALS-2020GMK050262

PATIENT
  Age: 28 Year
  Sex: Female

DRUGS (1)
  1. METFORMIN HYDROCHLORIDE. [Suspect]
     Active Substance: METFORMIN HYDROCHLORIDE
     Indication: PRODUCT USED FOR UNKNOWN INDICATION
     Dosage: UNK, (AS REPORTED: FIFTY 500 MG TABLETS OF HER HUSBAND?S METFORMIN PRESCRIPTION WERE MISSING)
     Route: 065

REACTIONS (12)
  - Toxicity to various agents [Recovered/Resolved]
  - Renal failure [Recovered/Resolved]
  - Drug level increased [Recovered/Resolved]
  - Acute respiratory distress syndrome [Recovered/Resolved]
  - Haemodynamic instability [Recovered/Resolved]
  - Shock [Recovered/Resolved]
  - Intentional overdose [Unknown]
  - Respiratory failure [Recovered/Resolved]
  - Abdominal compartment syndrome [Recovered/Resolved]
  - Rhabdomyolysis [Recovered/Resolved]
  - Distributive shock [Recovered/Resolved]
  - Metabolic acidosis [Recovered/Resolved]
